FAERS Safety Report 16722516 (Version 2)
Quarter: 2019Q3

REPORT INFORMATION
  Report Type: Spontaneous
  Country: CA (occurrence: CA)
  Receive Date: 20190820
  Receipt Date: 20190821
  Transmission Date: 20191005
  Serious: Yes (Death, Other)
  Sender: FDA-Public Use
  Company Number: PHHY2019CA194622

PATIENT
  Age: 81 Year
  Sex: Female

DRUGS (8)
  1. ACLASTA [Suspect]
     Active Substance: ZOLEDRONIC ACID
     Indication: OSTEOPOROSIS
     Dosage: UNK
     Route: 041
  2. CODEINE PHOSPHATE [Suspect]
     Active Substance: CODEINE PHOSPHATE
     Indication: PRODUCT USED FOR UNKNOWN INDICATION
     Dosage: UNK
     Route: 065
  3. AMOXIL [Suspect]
     Active Substance: AMOXICILLIN
     Indication: PRODUCT USED FOR UNKNOWN INDICATION
     Dosage: UNK
     Route: 065
  4. ZITHROMAX [Suspect]
     Active Substance: AZITHROMYCIN DIHYDRATE
     Indication: PRODUCT USED FOR UNKNOWN INDICATION
     Dosage: UNK
     Route: 065
  5. TEVA RISEDRONATE [Suspect]
     Active Substance: RISEDRONATE SODIUM
     Indication: PRODUCT USED FOR UNKNOWN INDICATION
     Dosage: UNK
     Route: 065
  6. PROPRANOLOL HYDROCHLORIDE. [Concomitant]
     Active Substance: PROPRANOLOL HYDROCHLORIDE
     Indication: PRODUCT USED FOR UNKNOWN INDICATION
     Dosage: UNK
     Route: 065
  7. DILAUDID [Concomitant]
     Active Substance: HYDROMORPHONE HYDROCHLORIDE
     Indication: PRODUCT USED FOR UNKNOWN INDICATION
     Dosage: UNK
     Route: 065
  8. ESOMEPRAZOLE SODIUM. [Concomitant]
     Active Substance: ESOMEPRAZOLE SODIUM
     Indication: PRODUCT USED FOR UNKNOWN INDICATION
     Dosage: UNK
     Route: 065

REACTIONS (21)
  - Adjustment disorder [Fatal]
  - Drug intolerance [Fatal]
  - Plasma cell myeloma [Fatal]
  - Drug hypersensitivity [Fatal]
  - Osteoarthritis [Fatal]
  - Palmar erythema [Fatal]
  - Atrophy [Fatal]
  - Hepatic steatosis [Fatal]
  - Monoclonal gammopathy [Fatal]
  - Sacroiliitis [Fatal]
  - Toxicity to various agents [Fatal]
  - Actinic keratosis [Fatal]
  - Anaemia [Fatal]
  - Back pain [Fatal]
  - Acute kidney injury [Fatal]
  - Angina pectoris [Fatal]
  - Bundle branch block left [Fatal]
  - Hypercalcaemia [Fatal]
  - Hypertension [Fatal]
  - Musculoskeletal pain [Fatal]
  - Spinal disorder [Fatal]
